FAERS Safety Report 6145481-0 (Version None)
Quarter: 2009Q2

REPORT INFORMATION
  Report Type: 
  Country: None (occurrence: None)
  Receive Date: 20090406
  Receipt Date: 20090317
  Transmission Date: 20091009
  Serious: Yes (Other)
  Sender: FDA-Public Use
  Company Number: US-PFIZER INC-2008016084

PATIENT
  Sex: Female
  Weight: 97.506 kg

DRUGS (6)
  1. LIPITOR [Suspect]
     Indication: BLOOD CHOLESTEROL INCREASED
     Dosage: 40 MG, 1X/DAY
     Dates: start: 20070101
  2. TRICOR [Concomitant]
     Dosage: UNK
  3. SYNTHROID [Concomitant]
     Dosage: UNK
  4. ATENOLOL [Concomitant]
     Dosage: UNK
  5. GLIPIZIDE [Concomitant]
     Dosage: UNK
  6. LOTENSIN [Concomitant]
     Dosage: UNK

REACTIONS (9)
  - BRAIN NEOPLASM [None]
  - CHEST PAIN [None]
  - DYSPEPSIA [None]
  - MEMORY IMPAIRMENT [None]
  - MYALGIA [None]
  - NERVOUSNESS [None]
  - ROAD TRAFFIC ACCIDENT [None]
  - SCREAMING [None]
  - STRESS [None]
